FAERS Safety Report 5059902-8 (Version None)
Quarter: 2006Q3

REPORT INFORMATION
  Report Type: 
  Country: None (occurrence: None)
  Receive Date: 20060724
  Receipt Date: 20060714
  Transmission Date: 20061208
  Serious: Yes (Hospitalization, Other)
  Sender: FDA-Public Use
  Company Number: 2006SE03984

PATIENT
  Age: 65 Year
  Sex: Male
  Weight: 68 kg

DRUGS (1)
  1. ATACAND [Suspect]
     Indication: HYPERTENSION
     Route: 048
     Dates: start: 20051215, end: 20060621

REACTIONS (6)
  - CHOLANGITIS SCLEROSING [None]
  - CHOLECYSTITIS CHRONIC [None]
  - HEPATITIS [None]
  - HYPERGLYCAEMIA [None]
  - PANCREATIC NEOPLASM [None]
  - PANCREATITIS [None]
